FAERS Safety Report 5923464-0 (Version None)
Quarter: 2008Q4

REPORT INFORMATION
  Report Type: 
  Country: None (occurrence: None)
  Receive Date: 20081020
  Receipt Date: 20081013
  Transmission Date: 20090506
  Serious: Yes (Other)
  Sender: FDA-Public Use
  Company Number: US-BAYER-200812228BCC

PATIENT
  Age: 69 Year
  Sex: Female

DRUGS (5)
  1. ALEVE [Suspect]
     Indication: ARTHRALGIA
     Dosage: TOTAL DAILY DOSE: 440 MG  UNIT DOSE: 220 MG
     Route: 048
     Dates: start: 20080501, end: 20080601
  2. GLUCOPHAGE [Concomitant]
  3. INSULIN [Concomitant]
  4. LABETALOL HCL [Concomitant]
  5. QUINAPRIL [Concomitant]

REACTIONS (2)
  - MUSCLE SPASMS [None]
  - RENAL DISORDER [None]
